FAERS Safety Report 10903273 (Version 1)
Quarter: 2015Q1

REPORT INFORMATION
  Report Type: Spontaneous
  Country: US (occurrence: US)
  Receive Date: 20150311
  Receipt Date: 20150311
  Transmission Date: 20150721
  Serious: Yes (Other)
  Sender: FDA-Public Use
  Company Number: US-ASTRAZENECA-2012SE76789

PATIENT
  Age: 46 Year
  Sex: Female

DRUGS (1)
  1. NEXIUM [Suspect]
     Active Substance: ESOMEPRAZOLE MAGNESIUM
     Route: 048

REACTIONS (6)
  - Ulcer [Unknown]
  - Drug dose omission [Not Recovered/Not Resolved]
  - Regurgitation [Unknown]
  - Chronic gastritis [Not Recovered/Not Resolved]
  - Malaise [Unknown]
  - Impaired gastric emptying [Unknown]
